FAERS Safety Report 7118510-5 (Version None)
Quarter: 2010Q4

REPORT INFORMATION
  Report Type: 
  Country: None (occurrence: None)
  Receive Date: 20101123
  Receipt Date: 20100727
  Transmission Date: 20110411
  Serious: No
  Sender: FDA-Public Use
  Company Number: US-MYLANLABS-2010S1006120

PATIENT
  Age: 71 Year
  Sex: Female

DRUGS (4)
  1. CLONAZEPAM [Suspect]
     Indication: PAIN
  2. CLONAZEPAM [Suspect]
     Indication: INSOMNIA
  3. CLONAZEPAM [Suspect]
     Indication: DEPRESSION
  4. CYCLOBENZAPRINE HCL [Suspect]

REACTIONS (11)
  - ABNORMAL DREAMS [None]
  - CONFUSIONAL STATE [None]
  - DRUG INEFFECTIVE FOR UNAPPROVED INDICATION [None]
  - DRY MOUTH [None]
  - HALLUCINATION [None]
  - INSOMNIA [None]
  - MIGRAINE [None]
  - NAUSEA [None]
  - NIGHTMARE [None]
  - REACTION TO DRUG EXCIPIENTS [None]
  - SLEEP TALKING [None]
